FAERS Safety Report 6691427-6 (Version None)
Quarter: 2010Q2

REPORT INFORMATION
  Report Type: 
  Country: None (occurrence: None)
  Receive Date: 20100416
  Receipt Date: 20100408
  Transmission Date: 20101027
  Serious: Yes (Death)
  Sender: FDA-Public Use
  Company Number: CO-JNJFOC-20100402392

PATIENT
  Sex: Female

DRUGS (1)
  1. DACOGEN [Suspect]
     Indication: MYELODYSPLASTIC SYNDROME
     Dosage: 20 MG/KG, 1 IN 1 DAY, INTRAVENOUS
     Route: 042
     Dates: start: 20100201, end: 20100201

REACTIONS (1)
  - DEATH [None]
